FAERS Safety Report 5979431-4 (Version None)
Quarter: 2008Q4

REPORT INFORMATION
  Report Type: 
  Country: None (occurrence: None)
  Receive Date: 20081204
  Receipt Date: 20081124
  Transmission Date: 20090506
  Serious: Yes (Hospitalization, Other)
  Sender: FDA-Public Use
  Company Number: GB-ELI_LILLY_AND_COMPANY-GB200810004742

PATIENT
  Sex: Male

DRUGS (1)
  1. BYETTA [Suspect]
     Dosage: 5 UG, UNKNOWN
     Route: 065

REACTIONS (6)
  - ANEURYSM [None]
  - MALAISE [None]
  - RENAL FAILURE [None]
  - RENAL TUBULAR DISORDER [None]
  - VOMITING [None]
  - WEIGHT DECREASED [None]
